FAERS Safety Report 8819170 (Version 1)
Quarter: 2012Q4

REPORT INFORMATION
  Report Type: Spontaneous
  Country: US (occurrence: None)
  Receive Date: 20121004
  Receipt Date: 20121004
  Transmission Date: 20130627
  Serious: No
  Sender: FDA-Public Use
  Company Number: DL2012-0592

PATIENT
  Sex: Female

DRUGS (2)
  1. MIFEPRISTONE [Suspect]
     Route: 048
     Dates: start: 20120613
  2. MISOPROSTOL [Suspect]
     Route: 067
     Dates: start: 20120813

REACTIONS (2)
  - Anaemia [None]
  - Dizziness [None]
